FAERS Safety Report 8087559-0 (Version None)
Quarter: 2012Q1

REPORT INFORMATION
  Report Type: 
  Country: None (occurrence: None)
  Receive Date: 20120128
  Receipt Date: 20110524
  Transmission Date: 20120608
  Serious: No
  Sender: FDA-Public Use
  Company Number: US-ABBOTT-11P-163-0728327-00

PATIENT
  Sex: Female

DRUGS (3)
  1. HUMIRA [Suspect]
     Dates: start: 20110516
  2. HUMIRA [Suspect]
     Indication: CROHN'S DISEASE
     Dosage: 160 MILLIGRAM LOADING DOSE
     Dates: start: 20110516, end: 20110516
  3. PREDNISONE TAB [Concomitant]
     Indication: CROHN'S DISEASE

REACTIONS (1)
  - HEADACHE [None]
